FAERS Safety Report 12384875 (Version 3)
Quarter: 2016Q3

REPORT INFORMATION
  Report Type: Spontaneous
  Country: US (occurrence: US)
  Receive Date: 20160519
  Receipt Date: 20160922
  Transmission Date: 20161109
  Serious: Yes (Congenital Anomaly, Other)
  Sender: FDA-Public Use
  Company Number: PHEH2016US012428

PATIENT
  Sex: Male

DRUGS (2)
  1. ZOFRAN [Suspect]
     Active Substance: ONDANSETRON HYDROCHLORIDE
     Indication: FOETAL EXPOSURE DURING PREGNANCY
     Route: 064
  2. ZOFRAN [Suspect]
     Active Substance: ONDANSETRON HYDROCHLORIDE
     Indication: FOETAL EXPOSURE DURING PREGNANCY
     Dosage: MOTHER^S DOSE: 4 MG, BID
     Route: 064

REACTIONS (17)
  - Cardiac murmur [Unknown]
  - Intussusception [Unknown]
  - Congenital anomaly [Unknown]
  - Pain [Unknown]
  - Injury [Unknown]
  - Heart disease congenital [Unknown]
  - Aorta hypoplasia [Unknown]
  - Developmental delay [Unknown]
  - Congenital diaphragmatic hernia [Unknown]
  - Atrial septal defect [Unknown]
  - Multiple congenital abnormalities [Unknown]
  - Right ventricular hypertension [Unknown]
  - Tricuspid valve incompetence [Unknown]
  - Pulmonary artery stenosis congenital [Unknown]
  - Foetal exposure during pregnancy [Unknown]
  - Anhedonia [Unknown]
  - Anxiety [Unknown]
